FAERS Safety Report 4512319-4 (Version None)
Quarter: 2004Q4

REPORT INFORMATION
  Report Type: 
  Country: None (occurrence: None)
  Receive Date: 20041129
  Receipt Date: 20041105
  Transmission Date: 20050328
  Serious: Yes (Other)
  Sender: FDA-Public Use
  Company Number: AU-GLAXOSMITHKLINE-B0357397A

PATIENT
  Age: 40 Year
  Sex: Male

DRUGS (3)
  1. 3TC [Suspect]
     Route: 065
     Dates: start: 20040401
  2. ZIAGEN [Suspect]
     Dates: start: 20040401
  3. KALETRA [Concomitant]
     Indication: ILL-DEFINED DISORDER
     Route: 065
     Dates: start: 20040401

REACTIONS (9)
  - ALANINE AMINOTRANSFERASE INCREASED [None]
  - ASPARTATE AMINOTRANSFERASE INCREASED [None]
  - BLOOD ALKALINE PHOSPHATASE INCREASED [None]
  - BLOOD BILIRUBIN INCREASED [None]
  - CHROMATURIA [None]
  - FAECES PALE [None]
  - FATIGUE [None]
  - GAMMA-GLUTAMYLTRANSFERASE INCREASED [None]
  - NAUSEA [None]
